FAERS Safety Report 20661288 (Version 1)
Quarter: 2022Q2

REPORT INFORMATION
  Report Type: Spontaneous
  Country: JP (occurrence: JP)
  Receive Date: 20220401
  Receipt Date: 20220401
  Transmission Date: 20220721
  Serious: Yes (Other)
  Sender: FDA-Public Use
  Company Number: JP-SUN PHARMACEUTICAL INDUSTRIES LTD-2022RR-331492

PATIENT
  Age: 72 Year
  Sex: Female

DRUGS (3)
  1. ANASTROZOLE [Suspect]
     Active Substance: ANASTROZOLE
     Indication: Interstitial lung disease
     Dosage: UNK
     Route: 065
     Dates: start: 201401
  2. LETROZOLE [Suspect]
     Active Substance: LETROZOLE
     Indication: Interstitial lung disease
     Dosage: UNK
     Route: 065
     Dates: start: 201404
  3. EXEMESTANE [Suspect]
     Active Substance: EXEMESTANE
     Indication: Metastasis
     Dosage: UNK
     Route: 065

REACTIONS (3)
  - Interstitial lung disease [Unknown]
  - Pneumonia aspiration [Unknown]
  - Disease recurrence [Unknown]
